FAERS Safety Report 19021594 (Version 2)
Quarter: 2021Q2

REPORT INFORMATION
  Report Type: Spontaneous
  Country: US (occurrence: US)
  Receive Date: 20210317
  Receipt Date: 20210514
  Transmission Date: 20210717
  Serious: No
  Sender: FDA-Public Use
  Company Number: US-ASTRAZENECA-2021A117718

PATIENT
  Age: 21165 Day
  Sex: Female
  Weight: 142.9 kg

DRUGS (7)
  1. SIMVASTATIN. [Concomitant]
     Active Substance: SIMVASTATIN
     Dosage: 40MG ONE TABLET BY MOUTH ONCE DAILY AT BEDTIME
  2. METFORMIN [Concomitant]
     Active Substance: METFORMIN HYDROCHLORIDE
     Indication: DIABETES MELLITUS
     Dosage: 500MG ONE IN THE MORNING AND ONE IN THE EVENING.
  3. HYDROCHOLORTHIAZ [Concomitant]
     Indication: HYPERTENSION
     Dosage: 1 TABLET BY MOUTH DAILY
  4. ASPIRIN. [Concomitant]
     Active Substance: ASPIRIN
     Dosage: LOW DOSE EVERY DAY
  5. BYDUREON BCISE [Suspect]
     Active Substance: EXENATIDE
     Indication: WEIGHT ABNORMAL
     Route: 058
     Dates: start: 20210305
  6. BYDUREON BCISE [Suspect]
     Active Substance: EXENATIDE
     Indication: DECREASED APPETITE
     Route: 058
     Dates: start: 20210305
  7. LISINOPRIL. [Concomitant]
     Active Substance: LISINOPRIL
     Dosage: 10MG ONE TAB MY MOUTH ONCE DAILY

REACTIONS (6)
  - Wrong technique in device usage process [Unknown]
  - Incorrect dose administered by device [Unknown]
  - Dizziness [Unknown]
  - Device issue [Unknown]
  - Injection site injury [Unknown]
  - Feeling abnormal [Unknown]

NARRATIVE: CASE EVENT DATE: 20210305
